FAERS Safety Report 5196835-0 (Version None)
Quarter: 2006Q4

REPORT INFORMATION
  Report Type: 
  Country: None (occurrence: None)
  Receive Date: 20061227
  Receipt Date: 20061215
  Transmission Date: 20070319
  Serious: Yes (Other)
  Sender: FDA-Public Use
  Company Number: 2006154027

PATIENT
  Sex: Female

DRUGS (1)
  1. SERTRALINE [Suspect]
     Indication: OBSESSIVE-COMPULSIVE DISORDER

REACTIONS (3)
  - DISEASE RECURRENCE [None]
  - OBSESSIVE-COMPULSIVE DISORDER [None]
  - PHARMACEUTICAL PRODUCT COMPLAINT [None]
